FAERS Safety Report 8914897 (Version 1)
Quarter: 2012Q4

REPORT INFORMATION
  Report Type: 
  Country: IT (occurrence: IT)
  Receive Date: 20121116
  Receipt Date: 20121116
  Transmission Date: 20130627
  Serious: Yes (Hospitalization)
  Sender: FDA-Public Use
  Company Number: IT-FRI-1000040414

PATIENT
  Age: 69 Year
  Sex: Female

DRUGS (2)
  1. NEBIVOLOL [Suspect]
     Indication: HYPERTENSION
     Dosage: 5 mg
     Route: 048
     Dates: start: 20110101, end: 20120905
  2. GLICLAZIDE [Concomitant]
     Indication: DIABETES MELLITUS

REACTIONS (1)
  - Tongue oedema [Recovered/Resolved]
